FAERS Safety Report 4718055-3 (Version None)
Quarter: 2005Q3

REPORT INFORMATION
  Report Type: 
  Country: None (occurrence: None)
  Receive Date: 20050718
  Receipt Date: 20050718
  Transmission Date: 20060218
  Serious: Yes (Hospitalization)
  Sender: FDA-Public Use
  Company Number: None

PATIENT
  Age: 11 Year
  Sex: Female
  Weight: 45.3597 kg

DRUGS (2)
  1. EFFEXOR [Suspect]
     Indication: ATTENTION DEFICIT/HYPERACTIVITY DISORDER
     Dosage: 1X PER DAY ORAL
     Route: 048
     Dates: start: 20011101, end: 20011225
  2. DEXEDRINE SPANSULES [Concomitant]

REACTIONS (3)
  - ABNORMAL BEHAVIOUR [None]
  - MANIA [None]
  - SUICIDAL IDEATION [None]
